FAERS Safety Report 17952999 (Version 3)
Quarter: 2020Q3

REPORT INFORMATION
  Report Type: Spontaneous
  Country: IT (occurrence: IT)
  Receive Date: 20200627
  Receipt Date: 20200713
  Transmission Date: 20201103
  Serious: Yes (Death, Other)
  Sender: FDA-Public Use
  Company Number: IT-ROCHE-2617434

PATIENT
  Sex: Female

DRUGS (4)
  1. PROPOFOL. [Suspect]
     Active Substance: PROPOFOL
     Indication: EUTHANASIA
     Route: 040
  2. MORPHINE [Suspect]
     Active Substance: MORPHINE
     Indication: EUTHANASIA
     Route: 040
  3. DIAZEPAM. [Suspect]
     Active Substance: DIAZEPAM
     Indication: EUTHANASIA
     Route: 040
     Dates: start: 20150105
  4. MIDAZOLAM. [Suspect]
     Active Substance: MIDAZOLAM
     Indication: EUTHANASIA
     Route: 040
     Dates: start: 20150105

REACTIONS (2)
  - Poisoning deliberate [Recovered/Resolved]
  - Intentional product misuse [Unknown]

NARRATIVE: CASE EVENT DATE: 20150105
